FAERS Safety Report 5276395-6 (Version None)
Quarter: 2007Q1

REPORT INFORMATION
  Report Type: 
  Country: None (occurrence: None)
  Receive Date: 20070327
  Receipt Date: 20070315
  Transmission Date: 20070707
  Serious: Yes (Hospitalization)
  Sender: FDA-Public Use
  Company Number: DE-ROCHE-475847

PATIENT
  Age: 75 Year
  Sex: Female

DRUGS (5)
  1. ROFERON-A [Suspect]
     Route: 065
     Dates: start: 20060815, end: 20061115
  2. MELOXICAM [Suspect]
     Route: 065
  3. KATADOLON [Suspect]
     Route: 065
  4. UNSPECIFIED DRUG [Suspect]
     Indication: DRUG USE FOR UNKNOWN INDICATION
     Route: 065
  5. ANTIHYPOTENSIVE AGENTS [Concomitant]

REACTIONS (2)
  - HEPATIC STEATOSIS [None]
  - LIVER FUNCTION TEST ABNORMAL [None]
